FAERS Safety Report 23776294 (Version 1)
Quarter: 2024Q2

REPORT INFORMATION
  Report Type: Spontaneous
  Country: US (occurrence: US)
  Receive Date: 20240424
  Receipt Date: 20240424
  Transmission Date: 20240716
  Serious: Yes (Other)
  Sender: FDA-Public Use
  Company Number: US-IMMUNOCORE, LTD-2024-IMC-002516

PATIENT

DRUGS (1)
  1. KIMMTRAK [Suspect]
     Active Substance: TEBENTAFUSP-TEBN
     Indication: Product used for unknown indication

REACTIONS (4)
  - Atrial fibrillation [Unknown]
  - Skin exfoliation [Unknown]
  - Pyrexia [Unknown]
  - Chills [Unknown]
